FAERS Safety Report 6644682-2 (Version None)
Quarter: 2010Q1

REPORT INFORMATION
  Report Type: 
  Country: None (occurrence: None)
  Receive Date: 20100322
  Receipt Date: 20100315
  Transmission Date: 20100710
  Serious: Yes (Other)
  Sender: FDA-Public Use
  Company Number: IT-TEVA-227902ISR

PATIENT
  Age: 55 Year
  Sex: Female

DRUGS (3)
  1. METHOTREXATE [Suspect]
     Route: 048
     Dates: start: 20020901
  2. CYCLOSPORINE [Suspect]
  3. METHYLPREDNISOLONE [Suspect]

REACTIONS (1)
  - KAPOSI'S SARCOMA [None]
